FAERS Safety Report 11008882 (Version 2)
Quarter: 2015Q2

REPORT INFORMATION
  Report Type: Other
  Country: GB (occurrence: GB)
  Receive Date: 20150410
  Receipt Date: 20150423
  Transmission Date: 20150821
  Serious: Yes (Disabling)
  Sender: FDA-Public Use
  Company Number: GB-MYLANLABS-2015M1010701

PATIENT

DRUGS (3)
  1. PARACETAMOL [Concomitant]
     Active Substance: ACETAMINOPHEN
     Indication: PRODUCT USED FOR UNKNOWN INDICATION
     Dosage: 500 MG, UNK
     Route: 065
  2. STEMETIL                           /00013303/ [Concomitant]
     Indication: DIZZINESS
     Dosage: 1 DF, BID
     Route: 048
     Dates: start: 20150323
  3. NAPROXEN. [Suspect]
     Active Substance: NAPROXEN
     Indication: PERIPHERAL SWELLING
     Dosage: 500 MG, BID
     Route: 048
     Dates: start: 20150318, end: 20150320

REACTIONS (5)
  - Dizziness [Not Recovered/Not Resolved]
  - Impaired driving ability [Unknown]
  - Abdominal pain upper [Not Recovered/Not Resolved]
  - Asthenia [Not Recovered/Not Resolved]
  - Headache [Not Recovered/Not Resolved]

NARRATIVE: CASE EVENT DATE: 20150320
